FAERS Safety Report 23067518 (Version 1)
Quarter: 2023Q4

REPORT INFORMATION
  Report Type: Spontaneous
  Country: RU (occurrence: RU)
  Receive Date: 20231016
  Receipt Date: 20231016
  Transmission Date: 20240109
  Serious: Yes (Hospitalization, Other)
  Sender: FDA-Public Use
  Company Number: RU-ASPEN-GLO2023RU006387

PATIENT

DRUGS (5)
  1. METOPROLOL SUCCINATE [Suspect]
     Active Substance: METOPROLOL SUCCINATE
     Indication: Arrhythmia prophylaxis
     Dosage: UNK
     Route: 048
  2. ROPIVACAINE HYDROCHLORIDE [Suspect]
     Active Substance: ROPIVACAINE HYDROCHLORIDE
     Indication: Spinal anaesthesia
     Dosage: UNK
     Dates: start: 201812, end: 201812
  3. LAPPACONITINE HYDROBROMIDE [Suspect]
     Active Substance: LAPPACONITINE HYDROBROMIDE
     Indication: Arrhythmia prophylaxis
     Dosage: UNK
  4. AMIODARONE [Suspect]
     Active Substance: AMIODARONE
     Indication: Arrhythmia prophylaxis
     Dosage: UNK
  5. SOTALOL [Suspect]
     Active Substance: SOTALOL
     Indication: Arrhythmia prophylaxis
     Dosage: UNK

REACTIONS (3)
  - Arrhythmic storm [Recovered/Resolved]
  - Circulatory collapse [Recovered/Resolved]
  - Drug ineffective [Unknown]

NARRATIVE: CASE EVENT DATE: 20181201
